FAERS Safety Report 9855361 (Version 3)
Quarter: 2014Q2

REPORT INFORMATION
  Report Type: Spontaneous
  Country: US (occurrence: US)
  Receive Date: 20140130
  Receipt Date: 20140527
  Transmission Date: 20141212
  Serious: Yes (Other)
  Sender: FDA-Public Use
  Company Number: US-JNJFOC-20140112292

PATIENT
  Sex: Male

DRUGS (2)
  1. RISPERDAL [Suspect]
     Indication: AUTISM
     Route: 065
  2. ABILIFY [Suspect]
     Indication: AUTISM
     Route: 065

REACTIONS (6)
  - Antiandrogen therapy [Unknown]
  - Dyskinesia [Unknown]
  - Musculoskeletal stiffness [Unknown]
  - Erection increased [Unknown]
  - Gynaecomastia [Unknown]
  - Weight increased [Unknown]
